FAERS Safety Report 7029231-1 (Version None)
Quarter: 2010Q3

REPORT INFORMATION
  Report Type: 
  Country: None (occurrence: None)
  Receive Date: 20100930
  Receipt Date: 20100922
  Transmission Date: 20110219
  Serious: Yes (Hospitalization, Other)
  Sender: FDA-Public Use
  Company Number: 2010AC000216

PATIENT
  Age: 85 Year
  Sex: Female

DRUGS (10)
  1. DIGOXIN [Suspect]
     Indication: ATRIAL FIBRILLATION
     Dosage: 0.125 MG;QD;PO
     Route: 048
     Dates: start: 20070101, end: 20080501
  2. DIGOXIN [Suspect]
     Indication: POST PROCEDURAL COMPLICATION
     Dosage: 0.125 MG;QD;PO
     Route: 048
     Dates: start: 20070101, end: 20080501
  3. TOPROL-XL [Concomitant]
  4. ENALAPRIL MALEATE [Concomitant]
  5. SIMVASTATIN [Concomitant]
  6. LASIX [Concomitant]
  7. POTASSIUM CHLORIDE [Concomitant]
  8. DILTIAZEM [Concomitant]
  9. IMDAPAMIDE [Concomitant]
  10. FOLTX [Concomitant]

REACTIONS (30)
  - ACTIVITIES OF DAILY LIVING IMPAIRED [None]
  - ANHEDONIA [None]
  - ANXIETY [None]
  - BUNDLE BRANCH BLOCK RIGHT [None]
  - CARDIAC MURMUR [None]
  - COMMINUTED FRACTURE [None]
  - DECREASED APPETITE [None]
  - DIZZINESS [None]
  - DIZZINESS POSTURAL [None]
  - DYSPNOEA [None]
  - ECONOMIC PROBLEM [None]
  - FALL [None]
  - FAMILY STRESS [None]
  - FRACTURE [None]
  - HEART RATE IRREGULAR [None]
  - HYPOTENSION [None]
  - INJURY [None]
  - JOINT DISLOCATION [None]
  - LOSS OF CONSCIOUSNESS [None]
  - NAUSEA [None]
  - OEDEMA PERIPHERAL [None]
  - PAIN [None]
  - PALPITATIONS [None]
  - PULSE PRESSURE DECREASED [None]
  - SOCIAL PROBLEM [None]
  - SURGERY [None]
  - SYNCOPE [None]
  - THERAPEUTIC AGENT TOXICITY [None]
  - UPPER LIMB FRACTURE [None]
  - VOMITING [None]
